APPROVED DRUG PRODUCT: INDOMETHACIN
Active Ingredient: INDOMETHACIN
Strength: 75MG
Dosage Form/Route: CAPSULE, EXTENDED RELEASE;ORAL
Application: A201807 | Product #001 | TE Code: AB
Applicant: HETERO LABS LTD UNIT III
Approved: Sep 28, 2012 | RLD: No | RS: Yes | Type: RX